FAERS Safety Report 24409095 (Version 2)
Quarter: 2024Q4

REPORT INFORMATION
  Report Type: Spontaneous
  Country: US (occurrence: US)
  Receive Date: 20241008
  Receipt Date: 20241110
  Transmission Date: 20250115
  Serious: No
  Sender: SANOFI AVENTIS
  Company Number: US-SA-2024SA286161

PATIENT
  Age: 47 Year
  Sex: Female

DRUGS (6)
  1. DUPIXENT [Suspect]
     Active Substance: DUPILUMAB
     Indication: Asthma
     Dosage: 300 MG, QOW
     Route: 058
     Dates: start: 20210409, end: 2024
  2. OMNIPAQUE [Concomitant]
     Active Substance: IOHEXOL
  3. LETROZOLE [Concomitant]
     Active Substance: LETROZOLE
  4. AZITHROMYCIN [Concomitant]
     Active Substance: AZITHROMYCIN
  5. AZELASTINE [Concomitant]
     Active Substance: AZELASTINE
  6. ALBUTEROL SULFATE [Concomitant]
     Active Substance: ALBUTEROL SULFATE

REACTIONS (2)
  - Drug ineffective [Unknown]
  - Inappropriate schedule of product administration [Unknown]
